FAERS Safety Report 4314644-9 (Version None)
Quarter: 2004Q1

REPORT INFORMATION
  Report Type: 
  Country: None (occurrence: None)
  Receive Date: 20040308
  Receipt Date: 20021225
  Transmission Date: 20041129
  Serious: Yes (Death)
  Sender: FDA-Public Use
  Company Number: 2003IC000003

PATIENT
  Age: 64 Year
  Sex: Male

DRUGS (3)
  1. 5-FLUOROURACIL (FLUOROURACIL) [Suspect]
     Indication: RECTAL CANCER
     Dosage: 1 GM; INTRAVENOUS
     Route: 042
     Dates: start: 20020902, end: 20020916
  2. ISOVORIN [Suspect]
     Indication: RECTAL CANCER
     Dosage: 375 MG; INTRAVENOUS
     Route: 042
     Dates: start: 20020902, end: 20020916
  3. IRINOTECAN HYDROCHLORIDE (IRINOTECAN HYDROCHLORIDE) [Suspect]
     Indication: RECTAL CANCER
     Dosage: 150 MG; INTRAVENOUS
     Route: 042
     Dates: start: 20020826, end: 20020916

REACTIONS (7)
  - BONE MARROW DEPRESSION [None]
  - DISSEMINATED INTRAVASCULAR COAGULATION [None]
  - GASTROINTESTINAL HAEMORRHAGE [None]
  - MALAISE [None]
  - NEUTROPENIA [None]
  - PYREXIA [None]
  - THROMBOCYTOPENIA [None]
